FAERS Safety Report 10385537 (Version 1)
Quarter: 2014Q3

REPORT INFORMATION
  Report Type: Report from Study
  Country: CN (occurrence: CN)
  Receive Date: 20140814
  Receipt Date: 20140814
  Transmission Date: 20150326
  Serious: Yes (Death)
  Sender: FDA-Public Use
  Company Number: CN-BAXTER-2014BAX049317

PATIENT

DRUGS (1)
  1. ESMOLOL HYDROCHLORIDE 10MG/ML [Suspect]
     Active Substance: ESMOLOL HYDROCHLORIDE
     Indication: VENTRICULAR ARRHYTHMIA
     Route: 042

REACTIONS (1)
  - Death [Fatal]
